FAERS Safety Report 8373707-1 (Version None)
Quarter: 2012Q2

REPORT INFORMATION
  Report Type: 
  Country: None (occurrence: None)
  Receive Date: 20120517
  Receipt Date: 20120502
  Transmission Date: 20120825
  Serious: Yes (Other)
  Sender: FDA-Public Use
  Company Number: PI-07170

PATIENT
  Age: 62 Year
  Sex: Male

DRUGS (7)
  1. CHLORAPREP [Suspect]
     Indication: THERAPEUTIC SKIN CARE TOPICAL
     Dosage: 1.5ML,ONCE,TOPICAL
     Route: 061
     Dates: start: 20120310
  2. CHLORAPREP [Suspect]
     Indication: PREOPERATIVE CARE
     Dosage: 1.5ML,ONCE,TOPICAL
     Route: 061
     Dates: start: 20120310
  3. ANAESTHESIA[MIDAZOLAM, PROPAFOL, ALFENTANIL, ROCURONIUM. [Concomitant]
  4. 500ML BAG OF HARTMANN'S SOLUTION WITH GENTAMICIN [Concomitant]
  5. CHLORAPREP [Suspect]
     Indication: THERAPEUTIC SKIN CARE TOPICAL
     Dosage: 3ML,ONCE,TOPICAL
     Route: 061
     Dates: start: 20120310
  6. CHLORAPREP [Suspect]
     Indication: PREOPERATIVE CARE
     Dosage: 3ML,ONCE,TOPICAL
     Route: 061
     Dates: start: 20120310
  7. PREMEDICATION[LORAZEPAM; BISOPROLOL, OXYGEN] [Concomitant]

REACTIONS (5)
  - ELECTROCARDIOGRAM ST SEGMENT ELEVATION [None]
  - HYPOTENSION [None]
  - HYPOXIA [None]
  - ARRHYTHMIA [None]
  - RASH ERYTHEMATOUS [None]
